FAERS Safety Report 7366836-2 (Version None)
Quarter: 2011Q1

REPORT INFORMATION
  Report Type: 
  Country: None (occurrence: None)
  Receive Date: 20110317
  Receipt Date: 20110317
  Transmission Date: 20110831
  Serious: Yes (Other)
  Sender: FDA-Public Use
  Company Number: None

PATIENT
  Age: 53 Year
  Sex: Female
  Weight: 52 kg

DRUGS (11)
  1. COLACE [Concomitant]
  2. MYFORTIC [Concomitant]
  3. BACTRIM [Suspect]
     Indication: ANTIFUNGAL PROPHYLAXIS
     Dates: start: 20110224, end: 20110301
  4. BACTRIM [Suspect]
     Indication: RENAL TRANSPLANT
     Dates: start: 20110224, end: 20110301
  5. PROGRAF [Concomitant]
  6. NEXIUM [Concomitant]
  7. PERCOCET [Concomitant]
  8. VALCYTE [Concomitant]
  9. PREDNISONE [Concomitant]
  10. COREG [Concomitant]
  11. ERGOCALCIFEROL [Concomitant]

REACTIONS (1)
  - BLOOD POTASSIUM INCREASED [None]
